FAERS Safety Report 9680276 (Version 1)
Quarter: 2013Q4

REPORT INFORMATION
  Report Type: Spontaneous
  Country: US (occurrence: US)
  Receive Date: 20131111
  Receipt Date: 20131111
  Transmission Date: 20140711
  Serious: No
  Sender: FDA-Public Use
  Company Number: US-009507513-1311USA000825

PATIENT
  Sex: 0

DRUGS (1)
  1. NASONEX [Suspect]
     Indication: EAR DISCOMFORT
     Dosage: UNK
     Route: 045
     Dates: start: 2013

REACTIONS (3)
  - Drug dose omission [Unknown]
  - Product quality issue [Unknown]
  - Off label use [Unknown]
